FAERS Safety Report 5018824-9 (Version None)
Quarter: 2006Q2

REPORT INFORMATION
  Report Type: 
  Country: None (occurrence: None)
  Receive Date: 20060601
  Receipt Date: 20060525
  Transmission Date: 20061013
  Serious: Yes (Other)
  Sender: FDA-Public Use
  Company Number: MYVW-PR-0605S-0025

PATIENT
  Age: 65 Year
  Sex: Male
  Weight: 78.4723 kg

DRUGS (3)
  1. MYOVIEW [Suspect]
     Indication: CHEST PAIN
     Dosage: SEE IMAGE
     Route: 042
     Dates: start: 20060525, end: 20060525
  2. MYOVIEW [Suspect]
     Indication: CHEST PAIN
     Dosage: SEE IMAGE
     Route: 042
     Dates: start: 20060526, end: 20060526
  3. TECHNETIUM (TC99M) GENERATOR  (SODIUM PERTECHNETATE TC99M) [Concomitant]

REACTIONS (4)
  - ANAPHYLACTOID REACTION [None]
  - PRURITUS [None]
  - RASH ERYTHEMATOUS [None]
  - RESPIRATORY DISTRESS [None]
